FAERS Safety Report 24425033 (Version 2)
Quarter: 2025Q1

REPORT INFORMATION
  Report Type: Report from Study
  Country: US (occurrence: US)
  Receive Date: 20241010
  Receipt Date: 20250116
  Transmission Date: 20250409
  Serious: Yes (Other)
  Sender: BAYER HEALTHCARE PHARMACEUTICALS INC.
  Company Number: US-BAYER-2024A142453

PATIENT
  Age: 71 Year
  Sex: Female

DRUGS (6)
  1. ADEMPAS [Suspect]
     Active Substance: RIOCIGUAT
     Indication: Pulmonary arterial hypertension
  2. ADEMPAS [Suspect]
     Active Substance: RIOCIGUAT
     Indication: Pulmonary arterial hypertension
     Dosage: 2.5 MG, TID
     Route: 048
     Dates: start: 202308
  3. PROLIA [Concomitant]
     Active Substance: DENOSUMAB
  4. PROLIA [Concomitant]
     Active Substance: DENOSUMAB
  5. OPSUMIT [Concomitant]
     Active Substance: MACITENTAN
  6. UPTRAVI [Concomitant]
     Active Substance: SELEXIPAG

REACTIONS (4)
  - General physical health deterioration [None]
  - Decreased activity [None]
  - Dyspnoea exertional [None]
  - Dyspnoea [None]
